FAERS Safety Report 7001405-5 (Version None)
Quarter: 2010Q3

REPORT INFORMATION
  Report Type: 
  Country: None (occurrence: None)
  Receive Date: 20100920
  Receipt Date: 20100111
  Transmission Date: 20110219
  Serious: No
  Sender: FDA-Public Use
  Company Number: US-ASTRAZENECA-2009SE15655

PATIENT
  Age: 50 Year
  Sex: Female
  Weight: 130.6 kg

DRUGS (7)
  1. SEROQUEL [Suspect]
     Indication: DEPRESSION
     Route: 048
     Dates: start: 20010101, end: 20080601
  2. SEROQUEL [Suspect]
     Indication: BIPOLAR DISORDER
     Route: 048
     Dates: start: 20010101, end: 20080601
  3. SEROQUEL [Suspect]
     Indication: SCHIZOPHRENIA
     Route: 048
     Dates: start: 20010101, end: 20080601
  4. ABILIFY [Concomitant]
     Dates: start: 20030101
  5. GEODON [Concomitant]
     Dates: start: 20030101
  6. RISPERDAL [Concomitant]
     Dates: start: 20030101
  7. ZYPREXA [Concomitant]
     Dates: start: 20030101

REACTIONS (3)
  - BLOOD TRIGLYCERIDES INCREASED [None]
  - OBESITY [None]
  - TYPE 2 DIABETES MELLITUS [None]
